FAERS Safety Report 9127359 (Version 1)
Quarter: 2013Q1

REPORT INFORMATION
  Report Type: Spontaneous
  Country: US (occurrence: US)
  Receive Date: 20130228
  Receipt Date: 20130228
  Transmission Date: 20140127
  Serious: No
  Sender: FDA-Public Use
  Company Number: US-GLAXOSMITHKLINE-A0971168A

PATIENT
  Age: 52 Year
  Sex: Female

DRUGS (13)
  1. LAMICTAL [Suspect]
     Indication: BIPOLAR DISORDER
     Route: 048
     Dates: start: 201201
  2. TUMS [Concomitant]
  3. ASPIRIN [Concomitant]
  4. FEXOFENADINE [Concomitant]
  5. EFFEXOR XR [Concomitant]
  6. SIMVASTATIN [Concomitant]
  7. TRAZODONE [Concomitant]
  8. PROPRANOLOL [Concomitant]
  9. LISINOPRIL [Concomitant]
  10. NAPROXEN [Concomitant]
  11. AQUAPHOR [Concomitant]
  12. VASELINE [Concomitant]
  13. LIP BALM [Concomitant]

REACTIONS (7)
  - Dry mouth [Unknown]
  - Chapped lips [Unknown]
  - Lip haemorrhage [Unknown]
  - Weight increased [Unknown]
  - Balance disorder [Unknown]
  - Dyspepsia [Unknown]
  - Rash [Unknown]
